FAERS Safety Report 9243032 (Version 3)
Quarter: 2013Q2

REPORT INFORMATION
  Report Type: Spontaneous
  Country: US (occurrence: US)
  Receive Date: 20130419
  Receipt Date: 20130516
  Transmission Date: 20140414
  Serious: Yes (Other)
  Sender: FDA-Public Use
  Company Number: CHPA2013US006581

PATIENT
  Age: 102 Year
  Sex: Female

DRUGS (2)
  1. MYOFLEX ANALGESIC CREME [Suspect]
     Indication: ARTHRALGIA
     Dosage: UNK, UNK
     Route: 061
     Dates: end: 20130412
  2. MYOFLEX ANALGESIC CREME [Suspect]
     Indication: JOINT SWELLING

REACTIONS (3)
  - Myocardial infarction [Not Recovered/Not Resolved]
  - Loss of consciousness [Not Recovered/Not Resolved]
  - Off label use [Unknown]
